FAERS Safety Report 8589518 (Version 15)
Quarter: 2013Q2

REPORT INFORMATION
  Report Type: Report from Study
  Country: SE (occurrence: SE)
  Receive Date: 20120531
  Receipt Date: 20130516
  Transmission Date: 20140414
  Serious: Yes (Hospitalization)
  Sender: FDA-Public Use
  Company Number: SE-ROCHE-1072086

PATIENT
  Age: 45 Year
  Sex: Female
  Weight: 53 kg

DRUGS (8)
  1. VEMURAFENIB [Suspect]
     Indication: MALIGNANT MELANOMA
     Dosage: DATE OF LAST DOSE PRIOR TO SAE : 13/DEC/2011
     Route: 048
     Dates: start: 20111214
  2. VEMURAFENIB [Suspect]
     Route: 048
     Dates: start: 20111021, end: 20111115
  3. VEMURAFENIB [Suspect]
     Route: 048
     Dates: start: 20111125, end: 20120207
  4. VEMURAFENIB [Suspect]
     Route: 048
     Dates: start: 20120402, end: 20120430
  5. VEMURAFENIB [Suspect]
     Route: 048
     Dates: start: 20111116, end: 20111124
  6. VEMURAFENIB [Suspect]
     Route: 048
     Dates: start: 20120208, end: 20120401
  7. VEMURAFENIB [Suspect]
     Dosage: LAST DOSE PRIOR TO SAE: 10/MAY/2012
     Route: 048
     Dates: start: 20120501, end: 20120511
  8. VEMURAFENIB [Suspect]
     Dosage: DATE OF LAST DOSE PRIOR TO SAE : 13/DEC/2011
     Route: 048
     Dates: start: 20111013

REACTIONS (1)
  - Nephropathy toxic [Recovered/Resolved with Sequelae]
